FAERS Safety Report 21420399 (Version 1)
Quarter: 2022Q4

REPORT INFORMATION
  Report Type: Spontaneous
  Country: US (occurrence: US)
  Receive Date: 20221007
  Receipt Date: 20221007
  Transmission Date: 20230113
  Serious: No
  Sender: FDA-Public Use
  Company Number: US-GSKCCFUS-Case-01518125_AE-86191

PATIENT
  Sex: Female

DRUGS (1)
  1. BENLYSTA [Suspect]
     Active Substance: BELIMUMAB
     Indication: Systemic lupus erythematosus
     Dosage: UNK
     Route: 058
     Dates: start: 202208

REACTIONS (11)
  - Pyrexia [Unknown]
  - Chills [Unknown]
  - Back pain [Unknown]
  - Pollakiuria [Unknown]
  - Tachyphrenia [Unknown]
  - Tremor [Unknown]
  - Confusional state [Unknown]
  - Depression [Unknown]
  - Balance disorder [Unknown]
  - Insomnia [Unknown]
  - Disturbance in attention [Unknown]

NARRATIVE: CASE EVENT DATE: 20220101
